FAERS Safety Report 15067043 (Version 2)
Quarter: 2018Q3

REPORT INFORMATION
  Report Type: Spontaneous
  Country: KR (occurrence: KR)
  Receive Date: 20180626
  Receipt Date: 20180903
  Transmission Date: 20181010
  Serious: Yes (Hospitalization, Other)
  Sender: FDA-Public Use
  Company Number: KR-LUPIN PHARMACEUTICALS INC.-2018-04557

PATIENT
  Age: 51 Year
  Sex: Female
  Weight: 68.6 kg

DRUGS (2)
  1. RIFAMPIN. [Suspect]
     Active Substance: RIFAMPIN
     Indication: LATENT TUBERCULOSIS
     Dosage: 600 MG, QD
     Route: 065
  2. ISONIAZID. [Suspect]
     Active Substance: ISONIAZID
     Indication: LATENT TUBERCULOSIS
     Dosage: 300 MG, QD
     Route: 065

REACTIONS (4)
  - Proteinuria [Recovering/Resolving]
  - Glomerulonephritis minimal lesion [Recovering/Resolving]
  - Acute kidney injury [Recovering/Resolving]
  - Hepatitis toxic [Recovering/Resolving]
